FAERS Safety Report 6000355-0 (Version None)
Quarter: 2008Q4

REPORT INFORMATION
  Report Type: 
  Country: None (occurrence: None)
  Receive Date: 20081215
  Receipt Date: 20081111
  Transmission Date: 20090506
  Serious: No
  Sender: FDA-Public Use
  Company Number: US-BAYER-200814746BCC

PATIENT

DRUGS (1)
  1. ALEVE [Suspect]

REACTIONS (1)
  - NO ADVERSE EVENT [None]
